FAERS Safety Report 20725661 (Version 1)
Quarter: 2022Q2

REPORT INFORMATION
  Report Type: Spontaneous
  Country: US (occurrence: None)
  Receive Date: 20220419
  Receipt Date: 20220419
  Transmission Date: 20220721
  Serious: No
  Sender: FDA-Public Use
  Company Number: None

PATIENT
  Age: 28 Year
  Sex: Female
  Weight: 58.5 kg

DRUGS (1)
  1. DEXTROAMPHET SACCHARAT, AMPHET ASPARTATE, DEXTROAMPHET SULFATE AND AMP [Suspect]
     Active Substance: AMPHETAMINE ASPARTATE\AMPHETAMINE SULFATE\DEXTROAMPHETAMINE SACCHARATE\DEXTROAMPHETAMINE SULFATE
     Indication: Attention deficit hyperactivity disorder
     Dosage: OTHER QUANTITY : 1 CAPSULE(S);?FREQUENCY : TWICE A DAY;?
     Route: 048
     Dates: start: 20220414, end: 20220418

REACTIONS (10)
  - Agitation [None]
  - Feeling abnormal [None]
  - Fatigue [None]
  - Malaise [None]
  - Fatigue [None]
  - Mood altered [None]
  - Therapeutic product effect incomplete [None]
  - Hypersensitivity [None]
  - Mental impairment [None]
  - Product substitution issue [None]

NARRATIVE: CASE EVENT DATE: 20220415
